FAERS Safety Report 19856461 (Version 1)
Quarter: 2021Q3

REPORT INFORMATION
  Report Type: Spontaneous
  Country: CA (occurrence: CA)
  Receive Date: 20210920
  Receipt Date: 20210920
  Transmission Date: 20211014
  Serious: Yes (Hospitalization)
  Sender: FDA-Public Use
  Company Number: CA-TEVA-2021-CA-1954751

PATIENT
  Age: 76 Year
  Sex: Female
  Weight: 63 kg

DRUGS (10)
  1. CITALOPRAM [Concomitant]
     Active Substance: CITALOPRAM HYDROBROMIDE
  2. TYLENOL [Concomitant]
     Active Substance: ACETAMINOPHEN
  3. QUETIAPINE XR [Suspect]
     Active Substance: QUETIAPINE
     Indication: IRRITABILITY
     Dosage: 50 MILLIGRAM DAILY;
     Route: 048
  4. JAMP?ASA EC [Suspect]
     Active Substance: ASPIRIN
     Indication: CARDIOVASCULAR EVENT PROPHYLAXIS
     Dosage: 80 MILLIGRAM DAILY;
     Route: 048
  5. DEXILANT [Concomitant]
     Active Substance: DEXLANSOPRAZOLE
  6. LIPITOR [Concomitant]
     Active Substance: ATORVASTATIN CALCIUM
     Route: 065
  7. VITAMIN D [Concomitant]
     Active Substance: VITAMIN D NOS
  8. CALCIUM [Concomitant]
     Active Substance: CALCIUM
  9. SYNTHROID [Concomitant]
     Active Substance: LEVOTHYROXINE SODIUM
  10. VOLTAREN [Concomitant]
     Active Substance: DICLOFENAC SODIUM

REACTIONS (6)
  - Acidosis [Unknown]
  - Subarachnoid haemorrhage [Unknown]
  - Neutrophilia [Unknown]
  - Blood creatine phosphokinase increased [Unknown]
  - Fall [Unknown]
  - Culture urine positive [Unknown]
